FAERS Safety Report 20573470 (Version 2)
Quarter: 2022Q4

REPORT INFORMATION
  Report Type: Spontaneous
  Country: US (occurrence: US)
  Receive Date: 20220309
  Receipt Date: 20221006
  Transmission Date: 20230113
  Serious: No
  Sender: FDA-Public Use
  Company Number: US-MYLANLABS-2022M1011862

PATIENT
  Sex: Female
  Weight: 86.1 kg

DRUGS (2)
  1. ESTRADIOL TRANSDERMAL SYSTEM [Suspect]
     Active Substance: ESTRADIOL
     Indication: Postmenopause
     Dosage: 0.05 MILLIGRAM, QD (TWICE WEEKLY)
     Route: 062
     Dates: start: 202102
  2. SYNTHROID [Concomitant]
     Active Substance: LEVOTHYROXINE SODIUM
     Indication: Thyroid disorder
     Dosage: 0.88 MICROGRAM, QD
     Route: 048

REACTIONS (5)
  - Application site reaction [Unknown]
  - Application site erythema [Unknown]
  - Product adhesion issue [Unknown]
  - Product substitution issue [Unknown]
  - Incorrect dose administered by product [Unknown]
